FAERS Safety Report 17993909 (Version 1)
Quarter: 2020Q3

REPORT INFORMATION
  Report Type: Spontaneous
  Country: FR (occurrence: FR)
  Receive Date: 20200708
  Receipt Date: 20200708
  Transmission Date: 20201103
  Serious: Yes (Hospitalization, Other)
  Sender: FDA-Public Use
  Company Number: FR-BRISTOL-MYERS SQUIBB COMPANY-BMS-2020-053896

PATIENT
  Age: 73 Year
  Sex: Male
  Weight: 82 kg

DRUGS (5)
  1. NIVOLUMAB [Suspect]
     Active Substance: NIVOLUMAB
     Indication: NEUROENDOCRINE CARCINOMA
     Dosage: 255 MILLIGRAM
     Route: 042
     Dates: start: 20190823, end: 20200604
  2. IPILIMUMAB [Suspect]
     Active Substance: IPILIMUMAB
     Indication: NEUROENDOCRINE CARCINOMA
     Dosage: 86 MILLIGRAM
     Route: 042
     Dates: start: 20190823, end: 20200604
  3. CORTANCYL [Concomitant]
     Active Substance: PREDNISONE
     Indication: PAIN IN EXTREMITY
     Dosage: 7.5 MILLIGRAM
     Route: 048
     Dates: start: 20200522
  4. COLCHIMAX [COLCHICINE;PAPAVER SOMNIFERUM POWDER;TIEMONIUM METHYLSULPHA [Suspect]
     Active Substance: COLCHICINE\OPIUM\TIEMONIUM METHYLSULFATE
     Indication: GOUT
     Dosage: 1 MILLIGRAM
     Route: 048
     Dates: start: 20200522, end: 20200618
  5. PARACETAMOL [Concomitant]
     Active Substance: ACETAMINOPHEN
     Indication: PAIN IN EXTREMITY
     Dosage: NON RENSEIGNEE
     Route: 048

REACTIONS (4)
  - Hepatitis acute [Not Recovered/Not Resolved]
  - Intentional product use issue [Unknown]
  - Cholestasis [Not Recovered/Not Resolved]
  - Hepatocellular injury [Not Recovered/Not Resolved]

NARRATIVE: CASE EVENT DATE: 20200618
